FAERS Safety Report 14305676 (Version 2)
Quarter: 2019Q1

REPORT INFORMATION
  Report Type: Spontaneous
  Country: DE (occurrence: DE)
  Receive Date: 20171219
  Receipt Date: 20190114
  Transmission Date: 20190417
  Serious: Yes (Life-Threatening, Hospitalization, Other)
  Sender: FDA-Public Use
  Company Number: DE-OTSUKA-BMS-2015-039921

PATIENT
  Age: 74 Year
  Sex: Male

DRUGS (19)
  1. QUETIAPINE. [Interacting]
     Active Substance: QUETIAPINE
     Dosage: 200 MG, QD
     Route: 048
     Dates: start: 20131106, end: 20131108
  2. QUETIAPINE. [Interacting]
     Active Substance: QUETIAPINE
     Dosage: 400 MG, QD
     Route: 048
     Dates: start: 20131122
  3. VALPROATE [Interacting]
     Active Substance: VALPROIC ACID
     Dosage: 2400 MG, QD
     Route: 048
     Dates: start: 20131111, end: 20140315
  4. QUETIAPINE. [Interacting]
     Active Substance: QUETIAPINE
     Indication: PRODUCT USED FOR UNKNOWN INDICATION
     Dosage: 50 MG, QD
     Route: 048
     Dates: start: 20131103
  5. QUETIAPINE. [Interacting]
     Active Substance: QUETIAPINE
     Dosage: 450 MG, QD
     Route: 048
     Dates: start: 20131116, end: 20131118
  6. QUETIAPINE. [Interacting]
     Active Substance: QUETIAPINE
     Dosage: 500 MG, QD
     Route: 048
     Dates: start: 20131119, end: 20131121
  7. VALPROATE [Interacting]
     Active Substance: VALPROIC ACID
     Indication: PRODUCT USED FOR UNKNOWN INDICATION
     Dosage: 900 MG, QD
     Route: 048
     Dates: start: 20130301, end: 20131101
  8. LITHIUM. [Concomitant]
     Active Substance: LITHIUM
     Indication: PRODUCT USED FOR UNKNOWN INDICATION
     Dosage: UNK
     Route: 065
  9. FINASTERID [Concomitant]
     Active Substance: FINASTERIDE
     Indication: PRODUCT USED FOR UNKNOWN INDICATION
     Dosage: 5 MG, QD
     Route: 048
     Dates: start: 20120101
  10. ABILIFY [Suspect]
     Active Substance: ARIPIPRAZOLE
     Indication: PRODUCT USED FOR UNKNOWN INDICATION
     Dosage: 10 MG, QD
     Route: 048
     Dates: start: 20131101, end: 20131112
  11. ALFUZOSIN [Concomitant]
     Active Substance: ALFUZOSIN
     Indication: PRODUCT USED FOR UNKNOWN INDICATION
     Dosage: 10 MG, QD
     Route: 048
     Dates: start: 20120101
  12. ABILIFY [Interacting]
     Active Substance: ARIPIPRAZOLE
     Dosage: 20 MG, QD
     Route: 048
     Dates: start: 20131113, end: 20131115
  13. QUETIAPINE. [Interacting]
     Active Substance: QUETIAPINE
     Dosage: 100 MG, QD
     Route: 048
     Dates: start: 20131104, end: 20131105
  14. QUETIAPINE. [Interacting]
     Active Substance: QUETIAPINE
     Dosage: 300 MG, QD
     Route: 048
     Dates: start: 20131109, end: 20131112
  15. QUETIAPINE. [Interacting]
     Active Substance: QUETIAPINE
     Dosage: 400 MG, QD
     Route: 048
     Dates: start: 20131113, end: 20131115
  16. VALPROATE [Interacting]
     Active Substance: VALPROIC ACID
     Dosage: 1600 MG, QD
     Route: 048
     Dates: start: 20131102, end: 20131110
  17. ABILIFY [Interacting]
     Active Substance: ARIPIPRAZOLE
     Dosage: 30 MG, QD
     Route: 048
     Dates: start: 20131116, end: 20131215
  18. VALPROATE [Interacting]
     Active Substance: VALPROIC ACID
     Dosage: 1800 MG, QD
     Route: 048
     Dates: start: 20140316, end: 20140401
  19. VALPROATE [Interacting]
     Active Substance: VALPROIC ACID
     Dosage: 1800 MG, QD
     Route: 048
     Dates: start: 20150402

REACTIONS (3)
  - Drug interaction [Unknown]
  - Coma [Recovered/Resolved]
  - Parkinsonism [Unknown]

NARRATIVE: CASE EVENT DATE: 20131121
